FAERS Safety Report 24971778 (Version 1)
Quarter: 2025Q1

REPORT INFORMATION
  Report Type: Spontaneous
  Country: CL (occurrence: CN)
  Receive Date: 20250214
  Receipt Date: 20250214
  Transmission Date: 20250408
  Serious: No
  Sender: ALEXION PHARMACEUTICALS
  Company Number: CN-AstraZeneca-2019SE84451

PATIENT
  Age: 50 Year
  Weight: 62 kg

DRUGS (1)
  1. NEXIUM [Suspect]
     Active Substance: ESOMEPRAZOLE MAGNESIUM
     Indication: Gastritis
     Dosage: 1 DOSAGE FORM, BID

REACTIONS (2)
  - Tinnitus [Recovered/Resolved]
  - Ear discomfort [Recovered/Resolved]
